FAERS Safety Report 17425654 (Version 4)
Quarter: 2021Q1

REPORT INFORMATION
  Report Type: Spontaneous
  Country: JP (occurrence: JP)
  Receive Date: 20200218
  Receipt Date: 20210316
  Transmission Date: 20210419
  Serious: Yes (Death, Life-Threatening, Hospitalization, Other)
  Sender: FDA-Public Use
  Company Number: JP-009507513-1912JPN003541J

PATIENT
  Age: 72 Year
  Sex: Male
  Weight: 60 kg

DRUGS (10)
  1. LOXOPROFEN [Concomitant]
     Active Substance: LOXOPROFEN
     Dosage: 60 MILLIGRAM, TID
     Route: 048
     Dates: start: 20191112, end: 20191225
  2. ROSUVASTATIN. [Concomitant]
     Active Substance: ROSUVASTATIN
     Dosage: 2.5 MILLIGRAM/DAY
     Route: 048
     Dates: end: 20191225
  3. REBAMIPIDE [Concomitant]
     Active Substance: REBAMIPIDE
     Dosage: 100 MILLIGRAM, TID
     Route: 048
     Dates: start: 20191112, end: 20191225
  4. AMLODIPINE [Concomitant]
     Active Substance: AMLODIPINE BESYLATE
     Indication: BLOOD PRESSURE DECREASED
     Dosage: 5 MILLIGRAM/DAY
     Route: 048
     Dates: end: 20191214
  5. TAKECAB [Concomitant]
     Active Substance: VONOPRAZAN FUMARATE
     Dosage: 20 MILLIGRAM/DAY
     Route: 048
     Dates: start: 20191112, end: 20191225
  6. KEYTRUDA [Suspect]
     Active Substance: PEMBROLIZUMAB
     Indication: LUNG SQUAMOUS CELL CARCINOMA STAGE IV
     Dosage: 200 MILLIGRAM, Q3W
     Route: 041
     Dates: start: 20191210, end: 20191210
  7. BAYASPIRIN [Concomitant]
     Active Substance: ASPIRIN
     Dosage: 100 MILLIGRAM/DAY
     Route: 048
     Dates: end: 20191225
  8. CARBOCISTEINE [Concomitant]
     Active Substance: CARBOCYSTEINE
     Dosage: 500 MILLIGRAM, TID
     Route: 048
     Dates: start: 20191112, end: 20191225
  9. CANDESARTAN. [Concomitant]
     Active Substance: CANDESARTAN
     Indication: BLOOD PRESSURE DECREASED
     Dosage: 8 MILLIGRAM/DAY
     Route: 048
     Dates: end: 20191214
  10. DEXTROMETHORPHAN HYDROBROMIDE. [Concomitant]
     Active Substance: DEXTROMETHORPHAN HYDROBROMIDE
     Dosage: 30 MILLIGRAM, TID
     Route: 048
     Dates: start: 20191112, end: 20191225

REACTIONS (6)
  - Malignant neoplasm progression [Fatal]
  - Interstitial lung disease [Fatal]
  - Pneumothorax [Not Recovered/Not Resolved]
  - Joint dislocation [Recovering/Resolving]
  - Disseminated intravascular coagulation [Not Recovered/Not Resolved]
  - Pneumocystis jirovecii pneumonia [Not Recovered/Not Resolved]

NARRATIVE: CASE EVENT DATE: 201912
